FAERS Safety Report 6449873-1 (Version None)
Quarter: 2009Q4

REPORT INFORMATION
  Report Type: 
  Country: None (occurrence: None)
  Receive Date: 20091123
  Receipt Date: 20091111
  Transmission Date: 20100525
  Serious: Yes (Hospitalization, Other)
  Sender: FDA-Public Use
  Company Number: US-RANBAXY-2009US-29081

PATIENT

DRUGS (6)
  1. VERAPAMIL [Suspect]
     Indication: ARRHYTHMIA
     Dosage: 240 MG, QD
     Route: 048
  2. METOPROLOL BASICS 100MG [Suspect]
     Indication: ARRHYTHMIA
     Dosage: 100 MG, BID
     Route: 065
  3. DILTIAZEM RPG LP 300MG GELULE A LIBERATION PROLONGEE [Suspect]
     Indication: ARRHYTHMIA
     Dosage: 300 MG, QD
     Route: 065
  4. ATENOLOL [Suspect]
     Indication: ARRHYTHMIA
     Dosage: 100 MG, QD
     Route: 065
  5. CILAZAPRIL [Suspect]
     Indication: DRUG USE FOR UNKNOWN INDICATION
     Dosage: 5 MG, QD
     Route: 065
  6. DILTIAZEM HYDROCHLORIDE [Suspect]
     Indication: ARRHYTHMIA
     Dosage: 240 MG, QD
     Route: 065

REACTIONS (9)
  - ASTHENIA [None]
  - ATRIAL FIBRILLATION [None]
  - CARDIOGENIC SHOCK [None]
  - DYSPNOEA [None]
  - FATIGUE [None]
  - HEART RATE INCREASED [None]
  - HYPOTENSION [None]
  - PACEMAKER GENERATED RHYTHM [None]
  - PALPITATIONS [None]
